FAERS Safety Report 4269817-0 (Version None)
Quarter: 2004Q1

REPORT INFORMATION
  Report Type: 
  Country: None (occurrence: None)
  Receive Date: 20040112
  Receipt Date: 20030105
  Transmission Date: 20041129
  Serious: Yes (Hospitalization)
  Sender: FDA-Public Use
  Company Number: 0104-817

PATIENT
  Age: 48 Year
  Sex: Male
  Weight: 94.3482 kg

DRUGS (7)
  1. ADVICOR [Suspect]
     Indication: BLOOD TRIGLYCERIDES INCREASED
     Dosage: 1 TABLET (S) QHS PO
     Route: 048
     Dates: start: 20030127, end: 20030129
  2. ADVICOR [Suspect]
     Indication: HIGH DENSITY LIPOPROTEIN DECREASED
     Dosage: 1 TABLET (S) QHS PO
     Route: 048
     Dates: start: 20030127, end: 20030129
  3. ASPIRIN [Concomitant]
  4. ACCUPRIL [Concomitant]
  5. COREG [Concomitant]
  6. PREVACID [Concomitant]
  7. ALDACTONE [Concomitant]

REACTIONS (6)
  - ARTHRALGIA [None]
  - DRUG HYPERSENSITIVITY [None]
  - FALL [None]
  - PARALYSIS [None]
  - RHABDOMYOLYSIS [None]
  - RHEUMATOID FACTOR POSITIVE [None]
